FAERS Safety Report 11483426 (Version 1)
Quarter: 2015Q3

REPORT INFORMATION
  Report Type: Spontaneous
  Country: US (occurrence: US)
  Receive Date: 20150903
  Receipt Date: 20150903
  Transmission Date: 20151125
  Serious: No
  Sender: FDA-Public Use
  Company Number: US-ELI_LILLY_AND_COMPANY-US201207000306

PATIENT
  Sex: Male

DRUGS (1)
  1. CYMBALTA [Suspect]
     Active Substance: DULOXETINE HYDROCHLORIDE
     Indication: AFFECTIVE DISORDER
     Dosage: UNK, UNKNOWN
     Route: 065
     Dates: start: 20120621

REACTIONS (4)
  - Affective disorder [Unknown]
  - Lethargy [Unknown]
  - Somnolence [Unknown]
  - Off label use [Unknown]
